FAERS Safety Report 9271895 (Version 6)
Quarter: 2014Q3

REPORT INFORMATION
  Report Type: Spontaneous
  Country: US (occurrence: US)
  Receive Date: 20130506
  Receipt Date: 20140827
  Transmission Date: 20150326
  Serious: Yes (Other)
  Sender: FDA-Public Use
  Company Number: US-MERCK-1305USA000873

PATIENT
  Sex: Male

DRUGS (5)
  1. PROPECIA [Suspect]
     Active Substance: FINASTERIDE
     Indication: ANDROGENETIC ALOPECIA
     Dosage: UNK
     Route: 048
     Dates: start: 2005
  2. FINASTERIDE. [Suspect]
     Active Substance: FINASTERIDE
     Indication: ANDROGENETIC ALOPECIA
     Dosage: 5 MG, UNK
     Route: 048
     Dates: start: 2005
  3. FLOMAX [Suspect]
     Active Substance: TAMSULOSIN HYDROCHLORIDE
     Dosage: UNK
     Dates: start: 2008
  4. FINASTERIDE. [Suspect]
     Active Substance: FINASTERIDE
     Indication: PROSTATOMEGALY
     Dosage: 5 MG, UNK
     Route: 048
     Dates: start: 200507, end: 201108
  5. FINASTERIDE. [Suspect]
     Active Substance: FINASTERIDE
     Dosage: 5 MG, QD
     Route: 048
     Dates: start: 20060630, end: 20100615

REACTIONS (12)
  - Anxiety [Unknown]
  - Hypertension [Not Recovered/Not Resolved]
  - Gynaecomastia [Unknown]
  - Cognitive disorder [Unknown]
  - Cholecystectomy [Unknown]
  - Peyronie^s disease [Unknown]
  - Bronchitis [Unknown]
  - Sexual dysfunction [Unknown]
  - Prostate cancer [Unknown]
  - Breast cancer [Unknown]
  - Erectile dysfunction [Unknown]
  - Depression [Unknown]

NARRATIVE: CASE EVENT DATE: 200702
